FAERS Safety Report 24964187 (Version 2)
Quarter: 2025Q2

REPORT INFORMATION
  Report Type: Report from Study
  Country: US (occurrence: US)
  Receive Date: 20250213
  Receipt Date: 20250515
  Transmission Date: 20250717
  Serious: Yes (Other)
  Sender: ABBVIE
  Company Number: US-ABBVIE-6131801

PATIENT
  Sex: Male

DRUGS (1)
  1. SKYRIZI [Suspect]
     Active Substance: RISANKIZUMAB-RZAA
     Indication: Product used for unknown indication
     Route: 058
     Dates: start: 20241010

REACTIONS (4)
  - Lower limb fracture [Recovering/Resolving]
  - Injection site bruising [Recovering/Resolving]
  - Thrombosis [Recovering/Resolving]
  - Joint dislocation [Recovering/Resolving]
